FAERS Safety Report 20453575 (Version 1)
Quarter: 2022Q1

REPORT INFORMATION
  Report Type: Spontaneous
  Country: ID (occurrence: ID)
  Receive Date: 20220210
  Receipt Date: 20220210
  Transmission Date: 20220423
  Serious: No
  Sender: FDA-Public Use
  Company Number: None

PATIENT
  Age: 14 Year
  Sex: Female

DRUGS (12)
  1. LINEZOLID [Suspect]
     Active Substance: LINEZOLID
     Indication: Disseminated tuberculosis
     Dosage: 400 MILLIGRAM, OD
     Route: 065
  2. LINEZOLID [Suspect]
     Active Substance: LINEZOLID
     Indication: Tuberculosis
  3. LEVOFLOXACIN [Concomitant]
     Active Substance: LEVOFLOXACIN
     Indication: Disseminated tuberculosis
     Dosage: 10 MILLIGRAM/KILOGRAM, OD
     Route: 065
  4. LEVOFLOXACIN [Concomitant]
     Active Substance: LEVOFLOXACIN
     Indication: Tuberculosis
  5. CYCLOSERINE [Concomitant]
     Active Substance: CYCLOSERINE
     Indication: Disseminated tuberculosis
     Dosage: 10 MILLIGRAM/KILOGRAM, OD
     Route: 065
  6. CYCLOSERINE [Concomitant]
     Active Substance: CYCLOSERINE
     Indication: Tuberculosis
  7. ETHIONAMIDE [Concomitant]
     Active Substance: ETHIONAMIDE
     Indication: Disseminated tuberculosis
     Dosage: 15 MILLIGRAM/KILOGRAM, OD
     Route: 065
  8. ETHIONAMIDE [Concomitant]
     Active Substance: ETHIONAMIDE
     Indication: Tuberculosis
  9. PYRAZINAMIDE [Concomitant]
     Active Substance: PYRAZINAMIDE
     Indication: Disseminated tuberculosis
     Dosage: 35 MICROGRAM/KILOGRAM, OD
     Route: 065
  10. PYRAZINAMIDE [Concomitant]
     Active Substance: PYRAZINAMIDE
     Indication: Tuberculosis
  11. AMINOSALICYLIC ACID [Concomitant]
     Active Substance: AMINOSALICYLIC ACID
     Indication: Disseminated tuberculosis
     Dosage: 200 MILLIGRAM/KILOGRAM, OD
     Route: 065
  12. AMINOSALICYLIC ACID [Concomitant]
     Active Substance: AMINOSALICYLIC ACID
     Indication: Tuberculosis

REACTIONS (1)
  - Toxicity to various agents [Unknown]
